FAERS Safety Report 5943285-2 (Version None)
Quarter: 2008Q4

REPORT INFORMATION
  Report Type: 
  Country: None (occurrence: None)
  Receive Date: 20081105
  Receipt Date: 20081105
  Transmission Date: 20090506
  Serious: Yes (Hospitalization)
  Sender: FDA-Public Use
  Company Number: None

PATIENT
  Sex: Female
  Weight: 77.7 kg

DRUGS (5)
  1. ALIMTA [Suspect]
     Indication: BONE SARCOMA
     Dosage: 915MG IV, 756MG IV
     Route: 042
     Dates: start: 20081014, end: 20081026
  2. TAXOTERE [Suspect]
     Dosage: 74.5MG IV, 75.6MG IV
     Route: 042
     Dates: start: 20081014, end: 20081028
  3. FOLIC ACID [Concomitant]
  4. VICODIN [Concomitant]
  5. DECADRON [Concomitant]

REACTIONS (2)
  - PNEUMONIA [None]
  - URINARY TRACT INFECTION [None]
